FAERS Safety Report 5441598-4 (Version None)
Quarter: 2007Q3

REPORT INFORMATION
  Report Type: 
  Country: None (occurrence: None)
  Receive Date: 20070830
  Receipt Date: 20070830
  Transmission Date: 20080115
  Serious: Yes (Hospitalization, Other)
  Sender: FDA-Public Use
  Company Number: None

PATIENT
  Sex: Male
  Weight: 104.3273 kg

DRUGS (2)
  1. MOBIC [Suspect]
     Indication: ARTHROPATHY
     Dosage: 7.5 MG 2 TIMES/DAY MOUTH
     Route: 048
     Dates: start: 20061010, end: 20061025
  2. MOBIC [Suspect]
     Indication: INFLAMMATION
     Dosage: 7.5 MG 2 TIMES/DAY MOUTH
     Route: 048
     Dates: start: 20061010, end: 20061025

REACTIONS (2)
  - URINARY RETENTION [None]
  - URINARY TRACT INFECTION [None]
